FAERS Safety Report 17799895 (Version 3)
Quarter: 2020Q2

REPORT INFORMATION
  Report Type: Report from Study
  Country: US (occurrence: US)
  Receive Date: 20200518
  Receipt Date: 20200619
  Transmission Date: 20200714
  Serious: Yes (Death, Hospitalization, Other)
  Sender: FDA-Public Use
  Company Number: US-VALIDUS PHARMACEUTICALS LLC-US-2020VAL000393

PATIENT

DRUGS (3)
  1. OCREVUS [Concomitant]
     Active Substance: OCRELIZUMAB
     Indication: PRODUCT USED FOR UNKNOWN INDICATION
     Dosage: UNK
     Dates: start: 201712
  2. AGALSIDASE BETA [Suspect]
     Active Substance: AGALSIDASE BETA
     Indication: FABRY^S DISEASE
     Dosage: 65 MG, QOW
     Route: 042
     Dates: start: 20070228, end: 20200605
  3. FUROSEMIDE. [Suspect]
     Active Substance: FUROSEMIDE
     Indication: PLEURAL EFFUSION
     Dosage: UNK
     Route: 065

REACTIONS (20)
  - Fractured coccyx [Not Recovered/Not Resolved]
  - Pleural effusion [Recovering/Resolving]
  - Cardiac hypertrophy [Not Recovered/Not Resolved]
  - Cardiac failure congestive [Not Recovered/Not Resolved]
  - Renal disorder [Not Recovered/Not Resolved]
  - Coccydynia [Not Recovered/Not Resolved]
  - Troponin increased [Unknown]
  - Headache [Not Recovered/Not Resolved]
  - Coma [Unknown]
  - Skin abrasion [Not Recovered/Not Resolved]
  - Swelling [Not Recovered/Not Resolved]
  - Brain natriuretic peptide increased [Not Recovered/Not Resolved]
  - Decubitus ulcer [Not Recovered/Not Resolved]
  - Heart valve calcification [Not Recovered/Not Resolved]
  - Hospice care [Not Recovered/Not Resolved]
  - Dyspnoea [Not Recovered/Not Resolved]
  - White blood cells urine positive [Unknown]
  - Death [Fatal]
  - Respiratory disorder [Unknown]
  - Urinary tract infection [Not Recovered/Not Resolved]

NARRATIVE: CASE EVENT DATE: 2018
